FAERS Safety Report 4454508-3 (Version None)
Quarter: 2004Q3

REPORT INFORMATION
  Report Type: 
  Country: None (occurrence: None)
  Receive Date: 20040917
  Receipt Date: 20040917
  Transmission Date: 20050211
  Serious: No
  Sender: FDA-Public Use
  Company Number: None

PATIENT
  Age: 73 Year
  Sex: Male

DRUGS (3)
  1. IBUPROFEN [Suspect]
     Indication: PAIN
     Dosage: 800 MG TID ORAL
     Route: 048
     Dates: start: 20040812, end: 20040819
  2. ACETAMINOPHEN W/ CODEINE [Concomitant]
  3. LEVOTHYROXINE SODIUM [Concomitant]

REACTIONS (1)
  - RENAL FAILURE ACUTE [None]
